FAERS Safety Report 11016071 (Version 2)
Quarter: 2015Q2

REPORT INFORMATION
  Report Type: Spontaneous
  Country: US (occurrence: US)
  Receive Date: 20150412
  Receipt Date: 20150525
  Transmission Date: 20150821
  Serious: No
  Sender: FDA-Public Use
  Company Number: US-JNJFOC-20130900725

PATIENT
  Age: 64 Year
  Sex: Female
  Weight: 57.61 kg

DRUGS (1)
  1. SIMPONI [Suspect]
     Active Substance: GOLIMUMAB
     Indication: COLITIS ULCERATIVE
     Route: 058
     Dates: start: 20130830

REACTIONS (6)
  - Drug dose omission [Unknown]
  - Haematochezia [Not Recovered/Not Resolved]
  - Device malfunction [Recovered/Resolved]
  - Medical device site reaction [Not Recovered/Not Resolved]
  - Injection site haemorrhage [Not Recovered/Not Resolved]
  - Colitis ulcerative [Not Recovered/Not Resolved]

NARRATIVE: CASE EVENT DATE: 20130830
